FAERS Safety Report 8996869 (Version 1)
Quarter: 2012Q4

REPORT INFORMATION
  Report Type: Spontaneous
  Country: GB (occurrence: None)
  Receive Date: 20121221
  Receipt Date: 20121221
  Transmission Date: 20130627
  Serious: Yes (Other)
  Sender: FDA-Public Use
  Company Number: DSA_61473_2012

PATIENT
  Age: 22 Year
  Sex: Female

DRUGS (3)
  1. METRONIDAZOLE (METRONIDAZOLE) [Suspect]
     Indication: TOOTH ABSCESS
     Dosage: (400)
     Dates: start: 20121127, end: 20121130
  2. IBUPROFEN (IBUPROFEN) [Suspect]
     Indication: PRODUCT USED FOR UNKNOWN INDICATION
     Dosage: (DF)
  3. PARACETAMOL (UNKNOWN) [Concomitant]

REACTIONS (5)
  - Gastrooesophageal reflux disease [None]
  - Dysgeusia [None]
  - Dehydration [None]
  - Discomfort [None]
  - Malaise [None]
